FAERS Safety Report 7884924-9 (Version None)
Quarter: 2011Q4

REPORT INFORMATION
  Report Type: 
  Country: None (occurrence: None)
  Receive Date: 20111102
  Receipt Date: 20111024
  Transmission Date: 20120403
  Serious: Yes (Hospitalization)
  Sender: FDA-Public Use
  Company Number: US-B.I. PHARMACEUTICALS,INC./RIDGEFIELD-2011-BP-23069BP

PATIENT
  Sex: Male
  Weight: 85.27 kg

DRUGS (17)
  1. PRADAXA [Suspect]
     Indication: ATRIAL FIBRILLATION
     Dosage: 150 MG
     Route: 048
     Dates: end: 20110914
  2. FOLIC ACID [Concomitant]
  3. VITAMIN B-12 [Concomitant]
  4. METOPROLOL TARTRATE [Concomitant]
  5. ASPIRIN [Concomitant]
  6. VITAMIN D [Concomitant]
  7. DOCUSATE SODIUM [Concomitant]
  8. FUROSEMIDE [Concomitant]
  9. MILK OF MAGNESIUM [Concomitant]
  10. TYLENOL-500 [Concomitant]
  11. GLIPIZIDE [Concomitant]
  12. ISORBIDE MONO [Concomitant]
  13. OMEPRAZOLE [Concomitant]
  14. VYTORIN [Concomitant]
  15. LANTUS [Concomitant]
  16. NITROGLYCERIN [Concomitant]
  17. LORATADINE [Concomitant]

REACTIONS (6)
  - GASTROINTESTINAL HAEMORRHAGE [None]
  - PYREXIA [None]
  - HAEMATOCRIT DECREASED [None]
  - RENAL FAILURE ACUTE [None]
  - HAEMATOCHEZIA [None]
  - MYOCARDIAL INFARCTION [None]
